FAERS Safety Report 20079916 (Version 4)
Quarter: 2021Q4

REPORT INFORMATION
  Report Type: Report from Study
  Country: MX (occurrence: MX)
  Receive Date: 20211117
  Receipt Date: 20211222
  Transmission Date: 20220303
  Serious: Yes (Other)
  Sender: FDA-Public Use
  Company Number: MX-NOVARTISPH-NVSC2021MX261541

PATIENT
  Age: 57 Year
  Sex: Female
  Weight: 83 kg

DRUGS (5)
  1. VOTRIENT [Suspect]
     Active Substance: PAZOPANIB HYDROCHLORIDE
     Indication: Renal neoplasm
     Dosage: 200 MG, BID (2 DF)
     Route: 048
     Dates: start: 20210115
  2. VOTRIENT [Suspect]
     Active Substance: PAZOPANIB HYDROCHLORIDE
     Dosage: 200 MG
     Route: 048
  3. VOTRIENT [Suspect]
     Active Substance: PAZOPANIB HYDROCHLORIDE
     Dosage: 2 DOSAGE FORM (200 MG), BID
     Route: 048
     Dates: start: 202101
  4. VOTRIENT [Suspect]
     Active Substance: PAZOPANIB HYDROCHLORIDE
     Dosage: 1 DOSAGE FORM (100 MG), IN THE MORNING AND AT NIGHT
     Route: 048
  5. LOSARTAN [Concomitant]
     Active Substance: LOSARTAN
     Indication: Hypertension
     Dosage: (1 DF), 30 MG
     Route: 048
     Dates: start: 2011

REACTIONS (13)
  - Cerebral infarction [Recovered/Resolved]
  - Colitis [Unknown]
  - Back pain [Unknown]
  - Diarrhoea [Unknown]
  - Constipation [Unknown]
  - Vomiting [Unknown]
  - Decreased appetite [Unknown]
  - Flatulence [Unknown]
  - Blood pressure increased [Unknown]
  - Inappropriate schedule of product administration [Not Recovered/Not Resolved]
  - Off label use [Not Recovered/Not Resolved]
  - Taste disorder [Unknown]
  - Depressed mood [Unknown]

NARRATIVE: CASE EVENT DATE: 20210101
